FAERS Safety Report 10882049 (Version 1)
Quarter: 2015Q1

REPORT INFORMATION
  Report Type: Spontaneous
  Country: US (occurrence: None)
  Receive Date: 20150225
  Receipt Date: 20150225
  Transmission Date: 20150721
  Serious: Yes (Life-Threatening, Disabling)
  Sender: FDA-Public Use
  Company Number: None

PATIENT
  Age: 63 Year
  Sex: Female
  Weight: 88.91 kg

DRUGS (4)
  1. IBUPROFEN. [Concomitant]
     Active Substance: IBUPROFEN
  2. LIOTHYRONINE [Suspect]
     Active Substance: LIOTHYRONINE
     Indication: HYPOTHYROIDISM
     Route: 048
     Dates: start: 20141211, end: 20150202
  3. ASPIRIN. [Concomitant]
     Active Substance: ASPIRIN
  4. LEVOTHYROXINE [Concomitant]
     Active Substance: LEVOTHYROXINE

REACTIONS (12)
  - Feeling abnormal [None]
  - Palpitations [None]
  - Restless legs syndrome [None]
  - Insomnia [None]
  - Nausea [None]
  - Pain [None]
  - Thinking abnormal [None]
  - Muscle tightness [None]
  - Muscle spasms [None]
  - Dyspnoea [None]
  - Activities of daily living impaired [None]
  - Dizziness [None]

NARRATIVE: CASE EVENT DATE: 20150101
